FAERS Safety Report 6141193-8 (Version None)
Quarter: 2009Q2

REPORT INFORMATION
  Report Type: 
  Country: None (occurrence: None)
  Receive Date: 20090402
  Receipt Date: 20090330
  Transmission Date: 20091009
  Serious: Yes (Other)
  Sender: FDA-Public Use
  Company Number: US-ASTRAZENECA-2008UW16055

PATIENT
  Age: 51 Year
  Sex: Male
  Weight: 83.9 kg

DRUGS (9)
  1. SEROQUEL [Suspect]
     Indication: SCHIZOPHRENIA
     Route: 048
     Dates: start: 20010101, end: 20071211
  2. SEROQUEL [Suspect]
     Indication: DEPRESSION
     Route: 048
     Dates: start: 20010101, end: 20071211
  3. ZYPREXA [Concomitant]
     Dates: start: 19990101, end: 20020101
  4. ABILIFY [Concomitant]
     Dates: start: 20060101, end: 20080101
  5. HALDOL [Concomitant]
     Dates: start: 20010101, end: 20070101
  6. STELAZINE [Concomitant]
     Dates: start: 19860101, end: 19910101
  7. THORAZINE [Concomitant]
     Dates: start: 19930101
  8. LITHIUM CARBONATE [Concomitant]
  9. TRAZODONE [Concomitant]

REACTIONS (5)
  - BLOOD CHOLESTEROL INCREASED [None]
  - DIABETES MELLITUS [None]
  - ERECTILE DYSFUNCTION [None]
  - MYOCARDIAL INFARCTION [None]
  - ROAD TRAFFIC ACCIDENT [None]
